FAERS Safety Report 10091012 (Version 1)
Quarter: 2014Q2

REPORT INFORMATION
  Report Type: Spontaneous
  Country: IT (occurrence: IT)
  Receive Date: 20140421
  Receipt Date: 20140421
  Transmission Date: 20141212
  Serious: Yes (Hospitalization)
  Sender: FDA-Public Use
  Company Number: PHHY2014IT047331

PATIENT
  Age: 81 Year
  Sex: Female

DRUGS (9)
  1. TEGRETOL [Suspect]
     Dosage: 500 MG, DAILY
     Route: 048
     Dates: start: 20140405, end: 20140405
  2. QUETIAPINE [Concomitant]
     Dosage: UNK UKN, UNK
  3. PANTOPRAZOLE [Concomitant]
     Dosage: UNK UKN, UNK
  4. DELORAZEPAM [Concomitant]
     Dosage: UNK UKN, UNK
  5. LASIX [Concomitant]
     Indication: HYPERTENSION
     Dosage: UNK UKN, UNK
  6. CARDICOR [Concomitant]
     Dosage: UNK UKN, UNK
  7. PLAVIX [Concomitant]
     Dosage: UNK UKN, UNK
  8. PRITOR [Concomitant]
     Dosage: UNK UKN, UNK
  9. CARDIOASPIRIN [Concomitant]
     Dosage: UNK UKN, UNK

REACTIONS (5)
  - Bradykinesia [Recovered/Resolved]
  - Drug abuse [Recovered/Resolved]
  - Somnolence [Recovered/Resolved]
  - Confusional state [Recovered/Resolved]
  - Depressed mood [Recovered/Resolved]
